FAERS Safety Report 6656643-8 (Version None)
Quarter: 2010Q1

REPORT INFORMATION
  Report Type: 
  Country: None (occurrence: None)
  Receive Date: 20100329
  Receipt Date: 20100316
  Transmission Date: 20100710
  Serious: Yes (Other)
  Sender: FDA-Public Use
  Company Number: US-ELI_LILLY_AND_COMPANY-US201003004943

PATIENT
  Sex: Female

DRUGS (4)
  1. CYMBALTA [Suspect]
     Indication: DEPRESSION
     Dosage: 60 MG, UNK
  2. RISPERDAL [Concomitant]
  3. SYNTHROID [Concomitant]
  4. OTHER ANTIHYPERTENSIVES [Concomitant]

REACTIONS (1)
  - HEPATIC ENZYME INCREASED [None]
